FAERS Safety Report 5795952-1 (Version None)
Quarter: 2008Q3

REPORT INFORMATION
  Report Type: 
  Country: None (occurrence: None)
  Receive Date: 20080701
  Receipt Date: 20080620
  Transmission Date: 20090109
  Serious: Yes (Hospitalization)
  Sender: FDA-Public Use
  Company Number: RU-JNJFOC-20080501852

PATIENT
  Sex: Female
  Weight: 51.5 kg

DRUGS (18)
  1. DOXORUBICIN HCL [Suspect]
     Dosage: CYCLE 12
     Route: 042
  2. DOXORUBICIN HCL [Suspect]
     Dosage: CYCLE 11
     Route: 042
  3. DOXORUBICIN HCL [Suspect]
     Dosage: CYCLE 10
     Route: 042
  4. DOXORUBICIN HCL [Suspect]
     Dosage: CYCLE 9
     Route: 042
  5. DOXORUBICIN HCL [Suspect]
     Dosage: CYCLE 8
     Route: 042
  6. DOXORUBICIN HCL [Suspect]
     Dosage: CYCLE 7
     Route: 042
  7. DOXORUBICIN HCL [Suspect]
     Dosage: CYCLE 6
     Route: 042
  8. DOXORUBICIN HCL [Suspect]
     Dosage: CYCLE 5
     Route: 042
  9. DOXORUBICIN HCL [Suspect]
     Dosage: CYCLE 4
     Route: 042
  10. DOXORUBICIN HCL [Suspect]
     Dosage: CYCLE 3
     Route: 042
  11. DOXORUBICIN HCL [Suspect]
     Dosage: CYCLE 2
     Route: 042
  12. DOXORUBICIN HCL [Suspect]
     Indication: OVARIAN CANCER
     Dosage: CYCLE 1
     Route: 042
  13. TRABECTEDIN (YONDELIS) [Suspect]
     Indication: OVARIAN CANCER
     Route: 042
  14. DEXAMETHASONE [Concomitant]
     Indication: PREMEDICATION
     Route: 042
  15. KETOROL [Concomitant]
     Route: 030
  16. METOCLOPRAMIDE [Concomitant]
     Indication: PROPHYLAXIS OF NAUSEA AND VOMITING
     Route: 030
  17. FERRUM LEK [Concomitant]
     Route: 030
  18. DEXAMETHASONE [Concomitant]
     Route: 030

REACTIONS (1)
  - ERYSIPELAS [None]
